FAERS Safety Report 13277105 (Version 1)
Quarter: 2017Q1

REPORT INFORMATION
  Report Type: Spontaneous
  Country: US (occurrence: US)
  Receive Date: 20170228
  Receipt Date: 20170228
  Transmission Date: 20170428
  Serious: Yes (Death)
  Sender: FDA-Public Use
  Company Number: None

PATIENT
  Age: 15 Year
  Sex: Male

DRUGS (4)
  1. ONDANSETRON ODT 4MG TAB CIT PHENYLKETONURICS 1.6 8 [Suspect]
     Active Substance: ONDANSETRON
     Indication: VOMITING
     Route: 048
  2. MULTIVITAMIN [Concomitant]
     Active Substance: VITAMINS
  3. DICYCLOMINE 20MG TAB [Suspect]
     Active Substance: DICYCLOMINE HYDROCHLORIDE
     Indication: MUSCLE SPASMS
     Route: 048
     Dates: end: 20160405
  4. ONDANSETRON ODT 4MG TAB CIT PHENYLKETONURICS 1.6 8 [Suspect]
     Active Substance: ONDANSETRON
     Indication: NAUSEA
     Route: 048

REACTIONS (4)
  - Dizziness [None]
  - Activities of daily living impaired [None]
  - Completed suicide [None]
  - Educational problem [None]

NARRATIVE: CASE EVENT DATE: 20160405
